FAERS Safety Report 23630253 (Version 1)
Quarter: 2024Q1

REPORT INFORMATION
  Report Type: Spontaneous
  Country: CZ (occurrence: CZ)
  Receive Date: 20240314
  Receipt Date: 20240314
  Transmission Date: 20240409
  Serious: Yes (Life-Threatening, Hospitalization, Other)
  Sender: FDA-Public Use
  Company Number: None

PATIENT
  Age: 64 Year
  Sex: Male
  Weight: 79 kg

DRUGS (7)
  1. YERVOY [Suspect]
     Active Substance: IPILIMUMAB
     Indication: Malignant melanoma
     Dosage: COMBINED IMMUNOTHERAPY NIVOLUMAB 1MG/KG (ADMINISTERED 85MG) + IPILIMUMAB 3MG/KG (ADMINISTERED 255MG)
     Route: 042
     Dates: start: 20231227, end: 20240117
  2. OPDIVO [Suspect]
     Active Substance: NIVOLUMAB
     Indication: Malignant melanoma
     Dosage: COMBINED IMMUNOTHERAPY NIVOLUMAB 1MG/KG (ADMINISTERED 85MG) + IPILIMUMAB 3MG/KG (ADMINISTERED 255MG)
     Route: 042
     Dates: start: 20231227, end: 20240117
  3. PREDNISONE [Concomitant]
     Active Substance: PREDNISONE
     Indication: Product used for unknown indication
     Dosage: 3-2-0,
     Route: 048
  4. TINKAIR [Concomitant]
     Indication: Product used for unknown indication
     Dosage: 1-0-1
     Route: 045
  5. TORVACARD NEO [Concomitant]
     Indication: Product used for unknown indication
     Dosage: 0-0-1
     Route: 048
  6. LEVOTHYROXINE SODIUM [Concomitant]
     Active Substance: LEVOTHYROXINE SODIUM
     Indication: Product used for unknown indication
     Dosage: 1-0-0
     Route: 048
  7. SERETIDE [Concomitant]
     Active Substance: FLUTICASONE PROPIONATE\SALMETEROL XINAFOATE
     Indication: Product used for unknown indication
     Dosage: 1-0-1, 1DF CONTAINS 50UG/250UG
     Route: 055

REACTIONS (7)
  - Muscular weakness [Recovering/Resolving]
  - Fatigue [Recovering/Resolving]
  - Immune-mediated hepatitis [Recovering/Resolving]
  - Myositis [Recovering/Resolving]
  - Diplopia [Recovering/Resolving]
  - Dyspnoea [Recovering/Resolving]
  - Prescribed overdose [Unknown]

NARRATIVE: CASE EVENT DATE: 20240206
